FAERS Safety Report 6708386-X (Version None)
Quarter: 2010Q2

REPORT INFORMATION
  Report Type: 
  Country: None (occurrence: None)
  Receive Date: 20100503
  Receipt Date: 20090609
  Transmission Date: 20101027
  Serious: No
  Sender: FDA-Public Use
  Company Number: US-ASTRAZENECA-2009UW17050

PATIENT
  Age: 52 Year
  Sex: Female
  Weight: 64.4 kg

DRUGS (5)
  1. NEXIUM [Suspect]
     Route: 048
  2. METOPROLOL TARTRATE [Concomitant]
  3. FISH OIL [Concomitant]
  4. CLONOPIN [Concomitant]
  5. PAXIL [Concomitant]

REACTIONS (2)
  - DYSPEPSIA [None]
  - GASTRIC DISORDER [None]
